FAERS Safety Report 15318383 (Version 3)
Quarter: 2020Q3

REPORT INFORMATION
  Report Type: Spontaneous
  Country: US (occurrence: US)
  Receive Date: 20180825
  Receipt Date: 20200731
  Transmission Date: 20201102
  Serious: Yes (Other)
  Sender: FDA-Public Use
  Company Number: US-009507513-1808USA008982

PATIENT
  Age: 64 Year
  Sex: Male

DRUGS (1)
  1. KEYTRUDA [Suspect]
     Active Substance: PEMBROLIZUMAB
     Indication: LUNG SQUAMOUS CELL CARCINOMA STAGE IV

REACTIONS (3)
  - Dermatitis exfoliative generalised [Recovering/Resolving]
  - Skin toxicity [Recovering/Resolving]
  - Pityriasis rubra pilaris [Recovering/Resolving]
